FAERS Safety Report 15111454 (Version 1)
Quarter: 2018Q3

REPORT INFORMATION
  Report Type: Report from Study
  Country: US (occurrence: US)
  Receive Date: 20180705
  Receipt Date: 20180705
  Transmission Date: 20181010
  Serious: Yes (Other)
  Sender: FDA-Public Use
  Company Number: US-GILEAD-2018-0348135

PATIENT

DRUGS (5)
  1. CYCLOSPORIN [Concomitant]
     Active Substance: CYCLOSPORINE
  2. PREDNISOLONE. [Concomitant]
     Active Substance: PREDNISOLONE
  3. MMF [Concomitant]
     Active Substance: MYCOPHENOLATE MOFETIL
  4. LEDIPASVIR/SOFOSBUVIR [Suspect]
     Active Substance: LEDIPASVIR\SOFOSBUVIR
     Indication: CHRONIC HEPATITIS C
     Dosage: UNK
     Route: 065
  5. BASILIXIMAB [Concomitant]
     Active Substance: BASILIXIMAB

REACTIONS (1)
  - Kidney transplant rejection [Unknown]
